FAERS Safety Report 9543502 (Version 1)
Quarter: 2013Q2

REPORT INFORMATION
  Report Type: Spontaneous
  Country: US (occurrence: None)
  Receive Date: 20130524
  Receipt Date: 20130524
  Transmission Date: 20140414
  Serious: Yes (Other)
  Sender: FDA-Public Use
  Company Number: PHEH2012US024758

PATIENT
  Age: 55 Year
  Sex: Female

DRUGS (1)
  1. GILENYA [Suspect]
     Indication: MULTIPLE SCLEROSIS
     Route: 048
     Dates: start: 201107

REACTIONS (5)
  - Lymphocyte count decreased [None]
  - Balance disorder [None]
  - Movement disorder [None]
  - Pollakiuria [None]
  - Inappropriate schedule of drug administration [None]
